FAERS Safety Report 12280857 (Version 2)
Quarter: 2016Q2

REPORT INFORMATION
  Report Type: Spontaneous
  Country: US (occurrence: US)
  Receive Date: 20160419
  Receipt Date: 20160427
  Transmission Date: 20160815
  Serious: Yes (Other)
  Sender: FDA-Public Use
  Company Number: US-AUROBINDO-AUR-APL-2016-04563

PATIENT
  Age: 11 Year
  Sex: Male

DRUGS (3)
  1. RISPERIDONE. [Suspect]
     Active Substance: RISPERIDONE
     Indication: DELIRIUM
     Dosage: 0.5 MG, TWO TIMES A DAY
     Route: 065
  2. RISPERIDONE. [Suspect]
     Active Substance: RISPERIDONE
     Indication: AGITATION
     Dosage: 0.3 MG, UNK
     Route: 065
  3. RISPERIDONE. [Suspect]
     Active Substance: RISPERIDONE
     Dosage: 1MG AT BEDTIME AND 0.5MG IN THE MORNING
     Route: 065

REACTIONS (7)
  - Muscle rigidity [Unknown]
  - Generalised tonic-clonic seizure [Unknown]
  - Blood pressure increased [Unknown]
  - Cognitive disorder [Unknown]
  - Dyskinesia [Unknown]
  - Encephalitis [Unknown]
  - Neuroleptic malignant syndrome [Unknown]
